FAERS Safety Report 6465833-9 (Version None)
Quarter: 2009Q4

REPORT INFORMATION
  Report Type: 
  Country: None (occurrence: None)
  Receive Date: 20091127
  Receipt Date: 20091118
  Transmission Date: 20100525
  Serious: Yes (Hospitalization)
  Sender: FDA-Public Use
  Company Number: 2009PL000308

PATIENT
  Age: 51 Year
  Sex: Female

DRUGS (13)
  1. ZYLOPRIM [Suspect]
     Indication: DRUG USE FOR UNKNOWN INDICATION
  2. BORTEZOMIB [Suspect]
     Indication: MULTIPLE MYELOMA
     Dosage: 1.3 MG/M2; IV
     Route: 042
     Dates: start: 20081205
  3. THALIDOMIDE [Suspect]
     Indication: MULTIPLE MYELOMA
     Dosage: 200 MG, QD;
     Dates: start: 20090119
  4. DEXAMETHASONE TAB [Suspect]
     Indication: MULTIPLE MYELOMA
     Dosage: 40 MG, PO
     Route: 048
     Dates: start: 20081201
  5. DIFLUCAN [Suspect]
     Indication: DRUG USE FOR UNKNOWN INDICATION
  6. ZOLPIDEM [Suspect]
     Indication: SLEEP DISORDER
     Dosage: 10 MG;
  7. CATAPRES [Concomitant]
  8. SYNTHROID [Concomitant]
  9. LOPRESSOR [Concomitant]
  10. NEPHRO-VITE RX [Concomitant]
  11. NORVASC [Concomitant]
  12. PRILOSEC [Concomitant]
  13. TUMS [Concomitant]

REACTIONS (7)
  - DEVICE RELATED INFECTION [None]
  - DISBACTERIOSIS [None]
  - NOSOCOMIAL INFECTION [None]
  - STAPHYLOCOCCAL INFECTION [None]
  - STEVENS-JOHNSON SYNDROME [None]
  - TOXIC EPIDERMAL NECROLYSIS [None]
  - WOUND INFECTION STAPHYLOCOCCAL [None]
